FAERS Safety Report 5418749-0 (Version None)
Quarter: 2007Q3

REPORT INFORMATION
  Report Type: 
  Country: None (occurrence: None)
  Receive Date: 20070817
  Receipt Date: 20070808
  Transmission Date: 20080115
  Serious: Yes (Hospitalization, Other)
  Sender: FDA-Public Use
  Company Number: AU-PFIZER INC-2007060018

PATIENT
  Sex: Female
  Weight: 62 kg

DRUGS (4)
  1. ZELDOX (CAPSULES) [Suspect]
     Indication: PSYCHOTIC DISORDER
     Route: 048
     Dates: start: 20070703, end: 20070725
  2. ZYPREXA [Suspect]
     Route: 048
  3. AMITRIPTYLINE HCL [Concomitant]
     Route: 048
  4. EFFEXOR XR [Concomitant]
     Route: 048

REACTIONS (6)
  - CONVULSION [None]
  - DELIRIUM [None]
  - HAEMORRHAGE INTRACRANIAL [None]
  - HEAD INJURY [None]
  - SUBDURAL HAEMATOMA [None]
  - SYNCOPE [None]
